FAERS Safety Report 6037878-4 (Version None)
Quarter: 2009Q1

REPORT INFORMATION
  Report Type: 
  Country: None (occurrence: None)
  Receive Date: 20090115
  Receipt Date: 20090113
  Transmission Date: 20090719
  Serious: Yes (Hospitalization)
  Sender: FDA-Public Use
  Company Number: US-JNJFOC-20081104742

PATIENT
  Sex: Female
  Weight: 55.34 kg

DRUGS (2)
  1. DURAGESIC-100 [Suspect]
     Indication: PAIN
     Route: 062
  2. NEURONTIN [Concomitant]
     Indication: NEUROPATHY PERIPHERAL
     Route: 048

REACTIONS (8)
  - BACK INJURY [None]
  - BACK PAIN [None]
  - CARPAL TUNNEL SYNDROME [None]
  - DIARRHOEA [None]
  - FATIGUE [None]
  - GASTRIC DISORDER [None]
  - HEART RATE IRREGULAR [None]
  - THERAPEUTIC RESPONSE DECREASED [None]
